FAERS Safety Report 9199014 (Version 2)
Quarter: 2013Q2

REPORT INFORMATION
  Report Type: Spontaneous
  Country: ZA (occurrence: ZA)
  Receive Date: 20130329
  Receipt Date: 20130410
  Transmission Date: 20140414
  Serious: Yes (Hospitalization, Other)
  Sender: FDA-Public Use
  Company Number: ZA-009507513-1303ZAF013587

PATIENT
  Age: 78 Year
  Sex: Female
  Weight: 73 kg

DRUGS (11)
  1. ESMERON [Suspect]
     Indication: MUSCLE RELAXANT THERAPY
     Dosage: 0.6 MG/KG, ONCE
     Route: 042
     Dates: start: 20130312
  2. ESMERON [Suspect]
     Indication: ENDOTRACHEAL INTUBATION
     Dosage: 0.2 MG/KG, ONCE
     Route: 042
     Dates: start: 20130312, end: 20130312
  3. ESMERON [Suspect]
     Indication: ANAESTHESIA
  4. ULTIVA [Concomitant]
     Indication: SHOULDER OPERATION
     Dosage: UNK
     Dates: start: 201303
  5. RENITEC 2.5 [Concomitant]
  6. AMILORETIC [Concomitant]
  7. ELTROXIN [Concomitant]
  8. PROPOFOL FRESENIUS [Concomitant]
  9. REMIFENTANIL HYDROCHLORIDE [Concomitant]
  10. CEPHRADINE [Concomitant]
  11. PARECOXIB [Concomitant]

REACTIONS (1)
  - Neuromuscular block prolonged [Recovered/Resolved]
